FAERS Safety Report 6535050-2 (Version None)
Quarter: 2010Q1

REPORT INFORMATION
  Report Type: 
  Country: None (occurrence: None)
  Receive Date: 20100111
  Receipt Date: 20100111
  Transmission Date: 20100710
  Serious: Yes (Other)
  Sender: FDA-Public Use
  Company Number: None

PATIENT
  Age: 77 Year
  Sex: Male
  Weight: 90.7194 kg

DRUGS (1)
  1. CIPROFLOXACIN HCL [Suspect]
     Indication: CYSTITIS
     Dosage: 1-250MG TWICE DAILY PO
     Route: 048
     Dates: start: 20100107, end: 20100109

REACTIONS (10)
  - CONFUSIONAL STATE [None]
  - COORDINATION ABNORMAL [None]
  - DYSPEPSIA [None]
  - EYE DISORDER [None]
  - GAIT DISTURBANCE [None]
  - MOVEMENT DISORDER [None]
  - NERVOUSNESS [None]
  - OEDEMA PERIPHERAL [None]
  - PAIN [None]
  - PAIN IN EXTREMITY [None]
